FAERS Safety Report 20058992 (Version 1)
Quarter: 2021Q4

REPORT INFORMATION
  Report Type: Spontaneous
  Country: RO (occurrence: None)
  Receive Date: 20211111
  Receipt Date: 20211111
  Transmission Date: 20220304
  Serious: Yes (Death, Life-Threatening, Other)
  Sender: FDA-Public Use
  Company Number: 2021A800145

PATIENT
  Age: 28033 Day
  Sex: Male

DRUGS (1)
  1. FASENRA [Suspect]
     Active Substance: BENRALIZUMAB
     Indication: Asthma
     Route: 058

REACTIONS (9)
  - COVID-19 [Fatal]
  - Acute respiratory failure [Unknown]
  - Cardiac arrest [Unknown]
  - Lacunar stroke [Unknown]
  - Pneumonia [Unknown]
  - Chronic kidney disease [Unknown]
  - Hypertension [Unknown]
  - Obesity [Unknown]
  - Chronic obstructive pulmonary disease [Unknown]

NARRATIVE: CASE EVENT DATE: 20211029
